FAERS Safety Report 4771509-6 (Version None)
Quarter: 2005Q3

REPORT INFORMATION
  Report Type: 
  Country: None (occurrence: None)
  Receive Date: 20050914
  Receipt Date: 20050914
  Transmission Date: 20060218
  Serious: No
  Sender: FDA-Public Use
  Company Number: None

PATIENT
  Sex: Male
  Weight: 105.6881 kg

DRUGS (1)
  1. AMIFOSTINE [Suspect]
     Indication: NEOPLASM MALIGNANT
     Dosage: 500 MG SQ (M-F)
     Route: 058
     Dates: start: 20050815

REACTIONS (1)
  - RASH MACULO-PAPULAR [None]
